FAERS Safety Report 14185534 (Version 2)
Quarter: 2017Q4

REPORT INFORMATION
  Report Type: Report from Study
  Country: US (occurrence: US)
  Receive Date: 20171114
  Receipt Date: 20171121
  Transmission Date: 20180321
  Serious: Yes (Hospitalization)
  Sender: FDA-Public Use
  Company Number: US-BAYER-2017-209772

PATIENT
  Age: 77 Year
  Sex: Male

DRUGS (3)
  1. STIVARGA [Suspect]
     Active Substance: REGORAFENIB
     Indication: COLORECTAL CANCER
     Dosage: 80 MG, QD (3 WEEKS ON/ONE WEEK OFF)
     Route: 048
     Dates: start: 20171025, end: 20171030
  2. STIVARGA [Suspect]
     Active Substance: REGORAFENIB
     Indication: COLORECTAL CANCER
     Dosage: DAILY DOSE 40 MG
     Route: 048
  3. STIVARGA [Suspect]
     Active Substance: REGORAFENIB
     Indication: COLORECTAL CANCER
     Dosage: 40 MG, QD (3 WEEKS ON/ONE WEEK OFF)
     Route: 048
     Dates: start: 20171023, end: 20171024

REACTIONS (13)
  - Dehydration [None]
  - Fatigue [Recovering/Resolving]
  - Back pain [None]
  - Drug intolerance [None]
  - Blood potassium decreased [None]
  - Gait inability [Recovering/Resolving]
  - Blood glucose increased [None]
  - Feeding disorder [None]
  - Off label use [None]
  - Abdominal pain [None]
  - Decreased appetite [None]
  - Asthenia [Recovering/Resolving]
  - Intentional product misuse [None]

NARRATIVE: CASE EVENT DATE: 2017
